FAERS Safety Report 5678472-4 (Version None)
Quarter: 2008Q1

REPORT INFORMATION
  Report Type: 
  Country: None (occurrence: None)
  Receive Date: 20080325
  Receipt Date: 20080314
  Transmission Date: 20080703
  Serious: Yes (Other)
  Sender: FDA-Public Use
  Company Number: ES-JNJFOC-20080200238

PATIENT
  Age: 71 Year
  Sex: Female

DRUGS (2)
  1. REMICADE [Suspect]
     Indication: CROHN'S DISEASE
     Route: 042
  2. AZATHIOPRINE [Concomitant]
     Indication: CROHN'S DISEASE
     Dosage: DOSE: 100MG/24 H
     Route: 065

REACTIONS (2)
  - KAPOSI'S SARCOMA [None]
  - URINARY TRACT INFECTION [None]
